FAERS Safety Report 6540475-5 (Version None)
Quarter: 2010Q1

REPORT INFORMATION
  Report Type: 
  Country: None (occurrence: None)
  Receive Date: 20100113
  Receipt Date: 20091230
  Transmission Date: 20100710
  Serious: Yes (Life-Threatening, Other)
  Sender: FDA-Public Use
  Company Number: 2010AL000125

PATIENT
  Age: 49 Year
  Sex: Female

DRUGS (3)
  1. FEVERALL [Suspect]
     Dosage: 1 GM; PO
     Dates: start: 20070724, end: 20070724
  2. RITUXIMAB [Concomitant]
  3. CHLORPHENIRAMINE MALEATE [Concomitant]

REACTIONS (4)
  - DRUG HYPERSENSITIVITY [None]
  - HYPERHIDROSIS [None]
  - HYPOTENSION [None]
  - OVERDOSE [None]
